FAERS Safety Report 20170462 (Version 1)
Quarter: 2021Q4

REPORT INFORMATION
  Report Type: Report from Study
  Country: US (occurrence: US)
  Receive Date: 20211210
  Receipt Date: 20211210
  Transmission Date: 20220303
  Serious: Yes (Other)
  Sender: FDA-Public Use
  Company Number: US-GILEAD-2021-0559382

PATIENT
  Sex: Male

DRUGS (1)
  1. AZTREONAM LYSINE [Suspect]
     Active Substance: AZTREONAM LYSINE
     Indication: Drug resistance
     Dosage: 75 MG TAKEN 28 DAYS ON AND 28 DAYS OFF
     Route: 065

REACTIONS (3)
  - Mechanical ventilation [Not Recovered/Not Resolved]
  - Sleep study [Not Recovered/Not Resolved]
  - Off label use [Not Recovered/Not Resolved]
